FAERS Safety Report 4598974-1 (Version None)
Quarter: 2005Q1

REPORT INFORMATION
  Report Type: 
  Country: None (occurrence: None)
  Receive Date: 20050303
  Receipt Date: 20050207
  Transmission Date: 20050727
  Serious: Yes (Life-Threatening, Hospitalization)
  Sender: FDA-Public Use
  Company Number: PHFR2004GB04658

PATIENT
  Age: 56 Year
  Sex: Male

DRUGS (1)
  1. LIORESAL [Suspect]
     Dosage: UNKNOWN ; INTRATHECAL
     Route: 037

REACTIONS (4)
  - COMA [None]
  - ESCHERICHIA INFECTION [None]
  - INCOHERENT [None]
  - MENINGITIS BACTERIAL [None]
